FAERS Safety Report 17187733 (Version 2)
Quarter: 2020Q1

REPORT INFORMATION
  Report Type: Spontaneous
  Country: IT (occurrence: IT)
  Receive Date: 20191221
  Receipt Date: 20200108
  Transmission Date: 20200409
  Serious: Yes (Other)
  Sender: FDA-Public Use
  Company Number: IT-SUN PHARMACEUTICAL INDUSTRIES LTD-2019RR-231608

PATIENT
  Age: 69 Year
  Sex: Female
  Weight: 64 kg

DRUGS (5)
  1. GEMCITABINE. [Suspect]
     Active Substance: GEMCITABINE
     Indication: PANCREATIC CARCINOMA METASTATIC
     Dosage: 1670 MILLIGRAMS, CYCLICAL
     Route: 041
     Dates: start: 20181023, end: 20181023
  2. OMEPRAZEN 40 MG POLVERE PER SOLUZIONE PER INFUSIONE [Concomitant]
     Indication: HYPERCHLORHYDRIA
     Dosage: 40 MILLIGRAM, CYCLICAL
     Route: 042
     Dates: start: 20181023, end: 20181023
  3. TRIMETON 10 MG/1 ML SOLUZIONE INIETTABILE [Concomitant]
     Indication: HYPERSENSITIVITY
     Dosage: 10 MILLIGRAMS, CYCLICAL
     Route: 042
     Dates: start: 20181023, end: 20181023
  4. DESAMETASONE FOSFATO HOSPIRA 4 MG/ML SOLUZIONE INIETTABILE [Concomitant]
     Indication: HYPERSENSITIVITY
     Dosage: 4 MILLIGRAMS, CYCLICAL
     Route: 042
     Dates: start: 20181023, end: 20181023
  5. ABRAXANE [Suspect]
     Active Substance: PACLITAXEL
     Indication: PANCREATIC CARCINOMA METASTATIC
     Dosage: 167 MILLIGRAMS, CYCLICAL
     Route: 041
     Dates: start: 20181023, end: 20181023

REACTIONS (4)
  - Presyncope [Recovered/Resolved]
  - Asthenia [Recovered/Resolved]
  - Malaise [Recovered/Resolved]
  - Diarrhoea [Recovered/Resolved]

NARRATIVE: CASE EVENT DATE: 20181025
